FAERS Safety Report 8158330-6 (Version None)
Quarter: 2012Q1

REPORT INFORMATION
  Report Type: 
  Country: None (occurrence: None)
  Receive Date: 20120217
  Receipt Date: 20120202
  Transmission Date: 20120608
  Serious: Yes (Death)
  Sender: FDA-Public Use
  Company Number: 2012020105

PATIENT
  Age: 34 Year
  Sex: Female

DRUGS (6)
  1. CARISOPRODOL [Suspect]
  2. OXYCODONE HCL [Suspect]
  3. ALPRAZOLAM [Suspect]
  4. FENTANYL [Suspect]
     Dosage: TRANSDERMAL
     Route: 062
  5. BUPRENORPHINE/NALOXONE (BUPRENORPHINE, NALOXONE) [Suspect]
     Dosage: SUBLINGUAL
     Route: 060
  6. LIDOCAINE [Suspect]

REACTIONS (3)
  - INCORRECT DOSE ADMINISTERED [None]
  - CARDIAC ARREST [None]
  - RESPIRATORY ARREST [None]
